FAERS Safety Report 23354421 (Version 2)
Quarter: 2024Q1

REPORT INFORMATION
  Report Type: Other
  Country: US (occurrence: None)
  Receive Date: 20240101
  Receipt Date: 20240228
  Transmission Date: 20240410
  Serious: Yes (Other)
  Sender: FDA-Public Use
  Company Number: US-ROCHE-3483459

PATIENT

DRUGS (2)
  1. RITUXIMAB [Suspect]
     Active Substance: RITUXIMAB
     Indication: Follicular lymphoma
     Dosage: RITUXIMAB 375MG WEEKLY X 4 THEN ON DAY 1 OF EACH CYCLE
     Route: 042
  2. COPANLISIB [Suspect]
     Active Substance: COPANLISIB
     Indication: Follicular lymphoma
     Dosage: ON DAYS 1, 8, AND 15 OF A 28-DAY
     Route: 065

REACTIONS (9)
  - Neutropenia [Unknown]
  - Mucosal inflammation [Unknown]
  - Infection [Unknown]
  - COVID-19 [Unknown]
  - Infusion related reaction [Unknown]
  - Rash [Unknown]
  - Nausea [Unknown]
  - Vomiting [Unknown]
  - Hepatotoxicity [Recovered/Resolved]
